FAERS Safety Report 10574076 (Version 1)
Quarter: 2014Q4

REPORT INFORMATION
  Report Type: Spontaneous
  Country: US (occurrence: US)
  Receive Date: 20141110
  Receipt Date: 20141110
  Transmission Date: 20150529
  Serious: Yes (Hospitalization)
  Sender: FDA-Public Use
  Company Number: US-BRISTOL-MYERS SQUIBB COMPANY-21575212

PATIENT
  Age: 71 Year
  Sex: Male
  Weight: 100.22 kg

DRUGS (16)
  1. BYETTA [Suspect]
     Active Substance: EXENATIDE
     Indication: TYPE 2 DIABETES MELLITUS
     Dosage: START: 2006 OR 2007
     Route: 058
     Dates: end: 201205
  2. POTASSIUM CHLORIDE. [Concomitant]
     Active Substance: POTASSIUM CHLORIDE
  3. ALLOPURINOL. [Concomitant]
     Active Substance: ALLOPURINOL
  4. ASPIRIN. [Concomitant]
     Active Substance: ASPIRIN
  5. ELIQUIS [Concomitant]
     Active Substance: APIXABAN
  6. SIMVASTATIN. [Concomitant]
     Active Substance: SIMVASTATIN
  7. BYDUREON [Suspect]
     Active Substance: EXENATIDE
     Indication: TYPE 2 DIABETES MELLITUS
     Route: 058
     Dates: start: 201205, end: 20141101
  8. METOLAZONE. [Concomitant]
     Active Substance: METOLAZONE
  9. LOVAZA [Concomitant]
     Active Substance: OMEGA-3-ACID ETHYL ESTERS
  10. FLECAINIDE [Concomitant]
     Active Substance: FLECAINIDE
  11. LEVOTHYROXINE [Concomitant]
     Active Substance: LEVOTHYROXINE
  12. GLIMEPIRIDE. [Concomitant]
     Active Substance: GLIMEPIRIDE
  13. LANTUS [Concomitant]
     Active Substance: INSULIN GLARGINE
  14. PRILOSEC [Concomitant]
     Active Substance: OMEPRAZOLE MAGNESIUM
  15. FUROSEMIDE. [Concomitant]
     Active Substance: FUROSEMIDE
  16. IBUPROFEN. [Concomitant]
     Active Substance: IBUPROFEN

REACTIONS (1)
  - Adenocarcinoma pancreas [Not Recovered/Not Resolved]

NARRATIVE: CASE EVENT DATE: 201410
